FAERS Safety Report 23665653 (Version 1)
Quarter: 2024Q1

REPORT INFORMATION
  Report Type: Spontaneous
  Country: CA (occurrence: CA)
  Receive Date: 20240323
  Receipt Date: 20240323
  Transmission Date: 20240409
  Serious: Yes (Hospitalization, Other)
  Sender: FDA-Public Use
  Company Number: CA-NOVITIUMPHARMA-2024CANVP00297

PATIENT
  Age: 35 Year
  Sex: Female

DRUGS (7)
  1. PREDNISONE [Suspect]
     Active Substance: PREDNISONE
     Indication: Asthma
  2. MIRTAZAPINE [Concomitant]
     Active Substance: MIRTAZAPINE
     Indication: Asthma
  3. FLUTICASONE FUROATE [Concomitant]
     Active Substance: FLUTICASONE FUROATE
     Indication: Asthma
  4. VILANTEROL [Concomitant]
     Active Substance: VILANTEROL
     Indication: Asthma
  5. Tiotropium-bromide [Concomitant]
     Indication: Asthma
  6. OMALIZUMAB [Concomitant]
     Active Substance: OMALIZUMAB
     Indication: Asthma
     Dates: start: 2009
  7. DUPILUMAB [Concomitant]
     Active Substance: DUPILUMAB
     Indication: Asthma
     Dates: start: 2018

REACTIONS (3)
  - Diabetes mellitus [Unknown]
  - Drug ineffective [Unknown]
  - Exposure during pregnancy [Unknown]
